FAERS Safety Report 15410484 (Version 1)
Quarter: 2018Q3

REPORT INFORMATION
  Report Type: Report from Study
  Country: None (occurrence: US)
  Receive Date: 20180921
  Receipt Date: 20180921
  Transmission Date: 20181010
  Serious: Yes (Other)
  Sender: FDA-Public Use
  Company Number: US-ABBVIE-17K-163-2077081-00

PATIENT
  Sex: Female

DRUGS (1)
  1. HUMIRA [Suspect]
     Active Substance: ADALIMUMAB
     Indication: RHEUMATOID ARTHRITIS
     Route: 058

REACTIONS (11)
  - Colectomy [Unknown]
  - Irritable bowel syndrome [Unknown]
  - Depression [Unknown]
  - Fibromyalgia [Unknown]
  - Hypertension [Unknown]
  - Gastrointestinal bacterial infection [Unknown]
  - Arthrodesis [Unknown]
  - Diabetes mellitus [Unknown]
  - Amnesia [Unknown]
  - Kyphosis [Unknown]
  - Stress [Unknown]
